FAERS Safety Report 7055823-X (Version None)
Quarter: 2010Q4

REPORT INFORMATION
  Report Type: 
  Country: None (occurrence: None)
  Receive Date: 20101021
  Receipt Date: 20101019
  Transmission Date: 20110411
  Serious: Yes (Life-Threatening, Hospitalization, Other)
  Sender: FDA-Public Use
  Company Number: FR-JNJFOC-20101005133

PATIENT
  Sex: Female
  Weight: 90 kg

DRUGS (5)
  1. DURAGESIC-100 [Suspect]
     Indication: HERPES ZOSTER
     Route: 062
  2. DURAGESIC-100 [Suspect]
     Route: 062
  3. PARIET [Concomitant]
     Indication: GASTROOESOPHAGEAL REFLUX DISEASE
     Route: 048
  4. LYRICA [Concomitant]
     Indication: HERPES ZOSTER
     Route: 065
  5. MULTIPLE OTHER MEDICATIONS [Concomitant]
     Route: 065

REACTIONS (4)
  - BRONCHOSPASM [None]
  - CARDIAC ARREST [None]
  - CYANOSIS [None]
  - DYSPNOEA [None]
